FAERS Safety Report 8877732 (Version 6)
Quarter: 2013Q2

REPORT INFORMATION
  Report Type: Spontaneous
  Country: US (occurrence: US)
  Receive Date: 20121024
  Receipt Date: 20130415
  Transmission Date: 20140414
  Serious: No
  Sender: FDA-Public Use
  Company Number: US-009507513-1210USA006654

PATIENT
  Age: 24 Year
  Sex: Female
  Weight: 104.31 kg

DRUGS (2)
  1. IMPLANON [Suspect]
     Indication: CONTRACEPTION
     Dosage: 1 DF, UNK
     Route: 059
     Dates: start: 20110424, end: 20121016
  2. ADVIL [Concomitant]

REACTIONS (10)
  - Headache [Unknown]
  - Pain in extremity [Unknown]
  - Device breakage [Recovered/Resolved]
  - Device dislocation [Recovered/Resolved]
  - Nausea [Unknown]
  - Dizziness [Unknown]
  - Abdominal pain lower [Unknown]
  - Ovarian cyst [Unknown]
  - Anxiety [Unknown]
  - Device difficult to use [Unknown]
